FAERS Safety Report 14151879 (Version 1)
Quarter: 2017Q4

REPORT INFORMATION
  Report Type: Spontaneous
  Country: US (occurrence: US)
  Receive Date: 20171101
  Receipt Date: 20171101
  Transmission Date: 20180321
  Serious: Yes (Disabling)
  Sender: FDA-Public Use
  Company Number: None

PATIENT
  Age: 31 Year
  Sex: Female
  Weight: 63 kg

DRUGS (1)
  1. DYSPORT [Suspect]
     Active Substance: ABOBOTULINUMTOXINA
     Indication: SKIN WRINKLING
     Route: 058
     Dates: start: 20170901, end: 20170901

REACTIONS (17)
  - Blood pressure increased [None]
  - Speech disorder [None]
  - Dysgeusia [None]
  - Dyspnoea [None]
  - Chest pain [None]
  - Tinnitus [None]
  - Panic attack [None]
  - Increased upper airway secretion [None]
  - Somnolence [None]
  - Oesophageal spasm [None]
  - Sinus congestion [None]
  - Headache [None]
  - Dysphonia [None]
  - Chest discomfort [None]
  - Hypoaesthesia oral [None]
  - Throat tightness [None]
  - Dizziness [None]

NARRATIVE: CASE EVENT DATE: 20170901
